FAERS Safety Report 7036393-9 (Version None)
Quarter: 2010Q4

REPORT INFORMATION
  Report Type: 
  Country: None (occurrence: None)
  Receive Date: 20101008
  Receipt Date: 20100928
  Transmission Date: 20110411
  Serious: Yes (Hospitalization)
  Sender: FDA-Public Use
  Company Number: JP-AMGEN-KDC442660

PATIENT
  Sex: Female
  Weight: 75.5 kg

DRUGS (7)
  1. ROMIPLOSTIM [Suspect]
     Indication: IDIOPATHIC THROMBOCYTOPENIC PURPURA
     Dates: start: 20081216
  2. PREDNISOLONE [Concomitant]
     Route: 048
     Dates: start: 20090901
  3. ALFAROL [Concomitant]
     Route: 048
     Dates: start: 20080630
  4. FERROMIA [Concomitant]
     Route: 048
     Dates: start: 20080630
  5. TAKEPRON [Concomitant]
     Route: 048
  6. TAMBOCOR [Concomitant]
     Route: 048
     Dates: start: 20070224
  7. ARTIST [Concomitant]
     Route: 048
     Dates: start: 20070224

REACTIONS (1)
  - DEEP VEIN THROMBOSIS [None]
